FAERS Safety Report 7461973-6 (Version None)
Quarter: 2011Q2

REPORT INFORMATION
  Report Type: 
  Country: None (occurrence: None)
  Receive Date: 20110506
  Receipt Date: 20110401
  Transmission Date: 20111010
  Serious: Yes (Hospitalization)
  Sender: FDA-Public Use
  Company Number: US-BAYER-200934747NA

PATIENT
  Age: 27 Year
  Sex: Female
  Weight: 86 kg

DRUGS (1)
  1. YAZ [Suspect]
     Indication: CONTRACEPTION
     Dosage: 1 DF (DAILY DOSE), QD, ORAL
     Route: 048

REACTIONS (2)
  - PULMONARY EMBOLISM [None]
  - THROMBOSIS [None]
